FAERS Safety Report 8769555 (Version 1)
Quarter: 2012Q4

REPORT INFORMATION
  Report Type: 
  Country: US (occurrence: US)
  Receive Date: 20120905
  Receipt Date: 20120905
  Transmission Date: 20130627
  Serious: No
  Sender: FDA-Public Use
  Company Number: US-PFIZER INC-2012214084

PATIENT
  Sex: Female

DRUGS (1)
  1. ESTROGENS CONJUGATED [Suspect]
     Indication: MENOPAUSE
     Dosage: UNK
     Route: 048

REACTIONS (3)
  - Hot flush [Unknown]
  - Disorientation [Unknown]
  - Product quality issue [Unknown]
